FAERS Safety Report 6366916-4 (Version None)
Quarter: 2009Q3

REPORT INFORMATION
  Report Type: 
  Country: None (occurrence: None)
  Receive Date: 20090921
  Receipt Date: 20090909
  Transmission Date: 20100115
  Serious: Yes (Hospitalization, Other)
  Sender: FDA-Public Use
  Company Number: US-ELI_LILLY_AND_COMPANY-US200909001998

PATIENT
  Sex: Female

DRUGS (6)
  1. FORTEO [Suspect]
  2. CODEINE SULFATE [Concomitant]
  3. NORMATOL [Concomitant]
     Indication: DIARRHOEA
  4. CALCIUM [Concomitant]
  5. VITAMIN D [Concomitant]
  6. OMEPRAZOLE [Concomitant]

REACTIONS (4)
  - ABSCESS INTESTINAL [None]
  - BACK PAIN [None]
  - CROHN'S DISEASE [None]
  - FEAR [None]
